FAERS Safety Report 10050118 (Version 1)
Quarter: 2014Q1

REPORT INFORMATION
  Report Type: Spontaneous
  Country: US (occurrence: None)
  Receive Date: 20140331
  Receipt Date: 20140331
  Transmission Date: 20141002
  Serious: Yes (Other)
  Sender: FDA-Public Use
  Company Number: None

PATIENT
  Age: 89 Year
  Sex: Male

DRUGS (1)
  1. EPOGEN [Suspect]
     Route: 058
     Dates: start: 20130119, end: 20140326

REACTIONS (1)
  - Cerebrovascular accident [None]
